FAERS Safety Report 24668869 (Version 2)
Quarter: 2024Q4

REPORT INFORMATION
  Report Type: Spontaneous
  Country: CA (occurrence: CA)
  Receive Date: 20241127
  Receipt Date: 20241205
  Transmission Date: 20250115
  Serious: Yes (Death, Hospitalization, Other)
  Sender: ASTELLAS
  Company Number: CA-ASTELLAS-2024-AER-020736

PATIENT
  Age: 80 Year
  Sex: Male

DRUGS (1)
  1. XTANDI [Suspect]
     Active Substance: ENZALUTAMIDE
     Indication: Prostate cancer
     Route: 048
     Dates: start: 202405

REACTIONS (6)
  - Pneumonia aspiration [Fatal]
  - Myocardial infarction [Fatal]
  - Regurgitation [Unknown]
  - Choking [Unknown]
  - Inappropriate schedule of product administration [Unknown]
  - Product physical issue [Unknown]

NARRATIVE: CASE EVENT DATE: 20240501
